FAERS Safety Report 5774396-2 (Version None)
Quarter: 2008Q2

REPORT INFORMATION
  Report Type: 
  Country: None (occurrence: None)
  Receive Date: 20080616
  Receipt Date: 20080530
  Transmission Date: 20081010
  Serious: Yes (Death)
  Sender: FDA-Public Use
  Company Number: JP-GENENTECH-253664

PATIENT
  Age: 44 Year
  Sex: Male

DRUGS (8)
  1. BEVACIZUMAB [Suspect]
     Indication: COLON CANCER METASTATIC
     Dosage: 5 MG/KG, QD
     Route: 041
     Dates: start: 20071010, end: 20071212
  2. OXALIPLATIN [Concomitant]
     Indication: CHEMOTHERAPY
     Dosage: UNK, UNK
     Dates: start: 20070801, end: 20071212
  3. FLUOROURACIL [Concomitant]
     Indication: CHEMOTHERAPY
     Dosage: UNK, UNK
     Dates: start: 20070801, end: 20071215
  4. ISOVORIN [Concomitant]
     Indication: CHEMOTHERAPY
     Dosage: UNK, UNK
     Dates: start: 20070801, end: 20071212
  5. KYTRIL [Concomitant]
     Indication: DRUG USE FOR UNKNOWN INDICATION
     Dosage: UNK, UNKNOWN
     Route: 065
  6. DECADRON [Concomitant]
     Indication: DRUG USE FOR UNKNOWN INDICATION
     Dosage: UNK, UNKNOWN
     Route: 065
  7. RABEPRAZOLE SODIUM [Concomitant]
     Indication: DRUG USE FOR UNKNOWN INDICATION
     Dates: start: 20071010, end: 20071226
  8. MOSAPRIDE CITRATE [Concomitant]
     Indication: DRUG USE FOR UNKNOWN INDICATION
     Dates: start: 20071010, end: 20071226

REACTIONS (1)
  - DISSEMINATED INTRAVASCULAR COAGULATION [None]
